FAERS Safety Report 8255953-0 (Version None)
Quarter: 2012Q2

REPORT INFORMATION
  Report Type: 
  Country: None (occurrence: None)
  Receive Date: 20120403
  Receipt Date: 20120326
  Transmission Date: 20120825
  Serious: Yes (Hospitalization)
  Sender: FDA-Public Use
  Company Number: SE-ROCHE-1052934

PATIENT
  Age: 40 Year
  Sex: Female

DRUGS (5)
  1. CYCLOPHOSPHAMIDE [Concomitant]
  2. HERCEPTIN [Suspect]
     Indication: PRODUCT USED FOR UNKNOWN INDICATION
  3. TAXOL [Concomitant]
  4. FLUOROURACIL [Concomitant]
  5. EPIRUBICIN HYDROCHLORIDE [Concomitant]

REACTIONS (4)
  - PNEUMONIA [None]
  - EMBOLISM [None]
  - CEREBROVASCULAR ACCIDENT [None]
  - THROMBOSIS [None]
